FAERS Safety Report 10055590 (Version 1)
Quarter: 2014Q2

REPORT INFORMATION
  Report Type: Spontaneous
  Country: US (occurrence: None)
  Receive Date: 20140402
  Receipt Date: 20140402
  Transmission Date: 20141212
  Serious: Yes (Death)
  Sender: FDA-Public Use
  Company Number: None

PATIENT
  Age: 53 Year
  Sex: Female

DRUGS (1)
  1. TECFIDERA 120MG BIOGEN [Suspect]
     Route: 048
     Dates: start: 20140326, end: 20140331

REACTIONS (2)
  - Back pain [None]
  - Pain in extremity [None]
